FAERS Safety Report 9286728 (Version 1)
Quarter: 2013Q2

REPORT INFORMATION
  Report Type: Spontaneous
  Country: GB (occurrence: None)
  Receive Date: 20130508
  Receipt Date: 20130508
  Transmission Date: 20140414
  Serious: Yes (Other)
  Sender: FDA-Public Use
  Company Number: 1695443

PATIENT
  Age: 77 Year
  Sex: Male

DRUGS (11)
  1. METHOTREXATE [Suspect]
     Indication: CROHN^S DISEASE
     Dosage: BEEN ON FOR A WHILE
  2. IMIQUIMOD [Suspect]
     Indication: BASAL CELL CARCINOMA
     Dosage: APPLIED ON WEEKDAYS ONLY
     Route: 061
     Dates: start: 20130307, end: 20130411
  3. WARFARIN [Concomitant]
  4. ALENDRONATE [Concomitant]
  5. GLUCOSE [Concomitant]
  6. LOPERAMIDE [Concomitant]
  7. SALMETEROL XINAFOATE) [Concomitant]
  8. TRAZODONE [Concomitant]
  9. CARBOCISTEINE [Concomitant]
  10. CALCIUM CARBONATE W/COLECALCIFEROL [Concomitant]
  11. AMOXICILLIN [Concomitant]

REACTIONS (3)
  - Pancytopenia [None]
  - Basal cell carcinoma [None]
  - Drug interaction [None]
